FAERS Safety Report 5056957-1 (Version None)
Quarter: 2006Q3

REPORT INFORMATION
  Report Type: 
  Country: None (occurrence: None)
  Receive Date: 20060721
  Receipt Date: 20060718
  Transmission Date: 20061208
  Serious: Yes (Death, Hospitalization)
  Sender: FDA-Public Use
  Company Number: 2006UW14725

PATIENT
  Age: 70 Year
  Sex: Female

DRUGS (3)
  1. CRESTOR [Suspect]
     Route: 048
     Dates: start: 20030101
  2. ZETIA [Concomitant]
  3. COLESTID [Concomitant]

REACTIONS (1)
  - RHABDOMYOLYSIS [None]
